FAERS Safety Report 11350581 (Version 3)
Quarter: 2020Q2

REPORT INFORMATION
  Report Type: Spontaneous
  Country: US (occurrence: US)
  Receive Date: 20150807
  Receipt Date: 20200526
  Transmission Date: 20200713
  Serious: Yes (Death, Hospitalization, Other)
  Sender: FDA-Public Use
  Company Number: US-009507513-1508USA002626

PATIENT
  Sex: Female
  Weight: 59.41 kg

DRUGS (5)
  1. JANUMET [Suspect]
     Active Substance: METFORMIN HYDROCHLORIDE\SITAGLIPTIN PHOSPHATE
     Dosage: 50-1000 MG, TWICE DAILY
     Route: 048
     Dates: start: 2008
  2. PRINIVIL [Concomitant]
     Active Substance: LISINOPRIL
     Indication: HYPERTENSION
     Dosage: UNK
     Route: 048
     Dates: start: 2008, end: 201308
  3. METOPROLOL. [Concomitant]
     Active Substance: METOPROLOL
     Indication: CARDIAC DISORDER
     Dosage: UNK
     Dates: start: 2008, end: 201308
  4. JANUMET [Suspect]
     Active Substance: METFORMIN HYDROCHLORIDE\SITAGLIPTIN PHOSPHATE
     Dosage: 50-500 MG, TWICE DAILY
     Route: 048
     Dates: end: 2012
  5. ZOCOR [Concomitant]
     Active Substance: SIMVASTATIN
     Indication: BLOOD CHOLESTEROL ABNORMAL
     Dosage: UNK
     Route: 048
     Dates: start: 2008, end: 201308

REACTIONS (28)
  - Eye disorder [Unknown]
  - Pelvic fluid collection [Unknown]
  - Myocardial infarction [Unknown]
  - Pulmonary granuloma [Unknown]
  - Intra-abdominal fluid collection [Unknown]
  - Atelectasis [Unknown]
  - Metastases to lymph nodes [Unknown]
  - Pneumonia [Unknown]
  - Renal cyst [Unknown]
  - Dyslipidaemia [Unknown]
  - Renal neoplasm [Unknown]
  - Hypertension [Unknown]
  - Pancreatic carcinoma metastatic [Fatal]
  - Tumour invasion [Unknown]
  - Pancreatic duct dilatation [Unknown]
  - Biliary dilatation [Unknown]
  - Arterial stenosis [Unknown]
  - Malignant ascites [Unknown]
  - Spinal compression fracture [Unknown]
  - Mesenteric vein thrombosis [Unknown]
  - Spleen scan abnormal [Unknown]
  - Gastrointestinal wall thickening [Unknown]
  - Wound [Recovered/Resolved]
  - Fungal infection [Unknown]
  - Cardiac failure congestive [Unknown]
  - Pancreatitis [Unknown]
  - Arteriosclerosis [Unknown]
  - Splenic vein thrombosis [Unknown]

NARRATIVE: CASE EVENT DATE: 2013
